FAERS Safety Report 23151505 (Version 1)
Quarter: 2023Q4

REPORT INFORMATION
  Report Type: Spontaneous
  Country: KR (occurrence: KR)
  Receive Date: 20231107
  Receipt Date: 20231107
  Transmission Date: 20240110
  Serious: Yes (Life-Threatening, Hospitalization)
  Sender: FDA-Public Use
  Company Number: KR-ENDO PHARMACEUTICALS INC-2023-005578

PATIENT
  Age: 77 Year
  Sex: Female

DRUGS (6)
  1. BACLOFEN [Suspect]
     Active Substance: BACLOFEN
     Indication: Myalgia
     Dosage: 10 MILLIGRAM, BID
     Route: 065
  2. ACECLOFENAC [Concomitant]
     Active Substance: ACECLOFENAC
     Indication: Myalgia
     Dosage: 100 MILLIGRAM, UNKNOWN
     Route: 065
  3. ACETAMINOPHEN [Concomitant]
     Active Substance: ACETAMINOPHEN
     Indication: Myalgia
     Dosage: 162.5 MILLIGRAM, UNKNOWN
     Route: 065
  4. EPERISONE [Concomitant]
     Active Substance: EPERISONE
     Indication: Myalgia
     Dosage: 50 MILLIGRAM, BID
     Route: 065
  5. PREGABALIN [Concomitant]
     Active Substance: PREGABALIN
     Indication: Myalgia
     Dosage: 25 MILLIGRAM, UNKNOWN
     Route: 065
  6. TRAMADOL HYDROCHLORIDE [Concomitant]
     Active Substance: TRAMADOL HYDROCHLORIDE
     Indication: Myalgia
     Dosage: 18.75 MILLIGRAM, UNKNOWN
     Route: 065

REACTIONS (5)
  - Toxicity to various agents [Recovered/Resolved]
  - Depressed level of consciousness [Recovered/Resolved]
  - Nausea [Recovered/Resolved]
  - Vomiting [Recovered/Resolved]
  - Dizziness [Recovered/Resolved]
